FAERS Safety Report 26020460 (Version 1)
Quarter: 2025Q4

REPORT INFORMATION
  Report Type: Spontaneous
  Country: US (occurrence: US)
  Receive Date: 20251110
  Receipt Date: 20251110
  Transmission Date: 20260117
  Serious: Yes (Death, Other)
  Sender: JOHNSON AND JOHNSON
  Company Number: US-VIIV HEALTHCARE-US2025AMR143997

PATIENT
  Sex: Male
  Weight: 92.98 kg

DRUGS (2)
  1. CABENUVA [Suspect]
     Active Substance: CABOTEGRAVIR\RILPIVIRINE
     Indication: HIV infection
     Dosage: UNK, Q2M (INJECT CABOTEGRAVIR 600 MG (3ML) AND RILPIVIRINE 900 MG (3ML) AS DIRECTED)
     Route: 030
  2. CABENUVA [Suspect]
     Active Substance: CABOTEGRAVIR\RILPIVIRINE
     Indication: HIV infection
     Dosage: UNK, Q2M (INJECT CABOTEGRAVIR 600 MG (3ML) AND RILPIVIRINE 900 MG (3ML) AS DIRECTED)
     Route: 030

REACTIONS (1)
  - Death [Fatal]
